FAERS Safety Report 14302417 (Version 1)
Quarter: 2017Q4

REPORT INFORMATION
  Report Type: Spontaneous
  Country: US (occurrence: US)
  Receive Date: 20171219
  Receipt Date: 20171219
  Transmission Date: 20180321
  Serious: No
  Sender: FDA-Public Use
  Company Number: US-SUPERNUS PHARMACEUTICALS, INC.-2017SUP00291

PATIENT
  Sex: Female

DRUGS (1)
  1. TROKENDI XR [Suspect]
     Active Substance: TOPIRAMATE

REACTIONS (4)
  - Blood glucose abnormal [Unknown]
  - Memory impairment [Unknown]
  - Renal disorder [Unknown]
  - Alopecia [Unknown]
